FAERS Safety Report 5678344-5 (Version None)
Quarter: 2008Q1

REPORT INFORMATION
  Report Type: 
  Country: None (occurrence: None)
  Receive Date: 20080320
  Receipt Date: 20080304
  Transmission Date: 20080703
  Serious: Yes (Hospitalization)
  Sender: FDA-Public Use
  Company Number: VNL_00990_2008

PATIENT
  Sex: Female
  Weight: 81.6475 kg

DRUGS (4)
  1. APOKYN [Suspect]
     Indication: PARKINSON'S DISEASE
     Dosage: (0.3 ML TWO TO THREE TIMES PER DAY SUBCUTANEOUS)
     Route: 058
     Dates: start: 20080101
  2. VITAMINS NOS [Concomitant]
  3. LASIX [Concomitant]
  4. CARBIDOPA AND LEVODOPA [Concomitant]

REACTIONS (3)
  - CELLULITIS [None]
  - OEDEMA PERIPHERAL [None]
  - SOMNOLENCE [None]
